FAERS Safety Report 14530697 (Version 1)
Quarter: 2018Q1

REPORT INFORMATION
  Report Type: Spontaneous
  Country: US (occurrence: US)
  Receive Date: 20180213
  Receipt Date: 20180213
  Transmission Date: 20180509
  Serious: Yes (Other)
  Sender: FDA-Public Use
  Company Number: None

PATIENT
  Age: 46 Year
  Sex: Female
  Weight: 62.1 kg

DRUGS (5)
  1. SERTRALINE [Suspect]
     Active Substance: SERTRALINE HYDROCHLORIDE
     Indication: ANXIETY
     Dosage: ?          QUANTITY:1 TABLET(S);?
     Route: 048
     Dates: start: 20180203, end: 20180211
  2. CLARITIN [Concomitant]
     Active Substance: LORATADINE
  3. VITAMIN D [Concomitant]
     Active Substance: CHOLECALCIFEROL
  4. WOMEN^S MULTI-VITAMIN [Concomitant]
  5. SERTRALINE [Suspect]
     Active Substance: SERTRALINE HYDROCHLORIDE
     Indication: DEPRESSION
     Dosage: ?          QUANTITY:1 TABLET(S);?
     Route: 048
     Dates: start: 20180203, end: 20180211

REACTIONS (11)
  - Tremor [None]
  - Fatigue [None]
  - Emotional disorder [None]
  - Headache [None]
  - Palpitations [None]
  - Mental impairment [None]
  - Anxiety [None]
  - Nausea [None]
  - Insomnia [None]
  - Impaired work ability [None]
  - Product substitution issue [None]

NARRATIVE: CASE EVENT DATE: 20180207
